FAERS Safety Report 8578456 (Version 3)
Quarter: 2013Q2

REPORT INFORMATION
  Report Type: Spontaneous
  Country: US (occurrence: US)
  Receive Date: 20120524
  Receipt Date: 20130625
  Transmission Date: 20140414
  Serious: Yes (Hospitalization, Other)
  Sender: FDA-Public Use
  Company Number: US-ROCHE-784121

PATIENT
  Age: 27 Year
  Sex: Female
  Weight: 68.1 kg

DRUGS (3)
  1. ACCUTANE [Suspect]
     Indication: ACNE
     Route: 065
     Dates: start: 1992, end: 1993
  2. ACCUTANE [Suspect]
     Route: 065
     Dates: start: 1993, end: 1994
  3. PROVERA [Concomitant]
     Indication: PRODUCT USED FOR UNKNOWN INDICATION

REACTIONS (11)
  - Inflammatory bowel disease [Unknown]
  - Crohn^s disease [Unknown]
  - Intestinal obstruction [Unknown]
  - Emotional distress [Unknown]
  - Colitis [Unknown]
  - Fistula [Unknown]
  - Ileal stenosis [Unknown]
  - Anal fissure [Unknown]
  - Intestinal perforation [Unknown]
  - Irritable bowel syndrome [Unknown]
  - Alanine aminotransferase increased [Unknown]
